FAERS Safety Report 21144952 (Version 1)
Quarter: 2022Q3

REPORT INFORMATION
  Report Type: Spontaneous
  Country: JP (occurrence: JP)
  Receive Date: 20220728
  Receipt Date: 20220728
  Transmission Date: 20221027
  Serious: Yes (Congenital Anomaly, Other)
  Sender: FDA-Public Use
  Company Number: JP-MTPC-MTPC2022-0019802

PATIENT
  Age: 32 Year
  Sex: Female

DRUGS (6)
  1. REMICADE [Suspect]
     Active Substance: INFLIXIMAB
     Indication: Product used for unknown indication
     Dosage: UNK
     Route: 041
  2. AZATHIOPRINE [Suspect]
     Active Substance: AZATHIOPRINE
     Indication: Crohn^s disease
     Dosage: 25 MILLIGRAM, QD
     Route: 048
     Dates: start: 20180411
  3. STELARA [Suspect]
     Active Substance: USTEKINUMAB
     Indication: Crohn^s disease
     Dosage: 90 MILLIGRAM, Q8WEEKS
     Route: 058
     Dates: start: 201707, end: 20210901
  4. SULFASALAZINE [Suspect]
     Active Substance: SULFASALAZINE
     Indication: Crohn^s disease
     Dosage: 1500 MILLIGRAM, BID
     Route: 048
     Dates: start: 20180907, end: 20201118
  5. BERBERINE\GERANIUM [Concomitant]
     Active Substance: BERBERINE\GERANIUM
     Dosage: UNK
     Route: 048
     Dates: start: 20180213, end: 20191016
  6. SODIUM FERROUS CITRATE [Concomitant]
     Active Substance: SODIUM FERROUS CITRATE
     Dosage: UNK
     Route: 048
     Dates: start: 20180404, end: 20211127

REACTIONS (3)
  - Abortion [Recovered/Resolved with Sequelae]
  - Dyspnoea [Unknown]
  - Maternal exposure during pregnancy [Unknown]
